FAERS Safety Report 5799640-7 (Version None)
Quarter: 2008Q3

REPORT INFORMATION
  Report Type: 
  Country: None (occurrence: None)
  Receive Date: 20080702
  Receipt Date: 20080702
  Transmission Date: 20090109
  Serious: No
  Sender: FDA-Public Use
  Company Number: None

PATIENT
  Age: 81 Year
  Sex: Male

DRUGS (1)
  1. DIGOXIN TABS JSP 544; 0.125MG AMIDE (BERTEK) [Suspect]

REACTIONS (2)
  - ARRHYTHMIA [None]
  - XANTHOPSIA [None]
